FAERS Safety Report 9853630 (Version 1)
Quarter: 2014Q1

REPORT INFORMATION
  Report Type: Spontaneous
  Country: US (occurrence: US)
  Receive Date: 20140129
  Receipt Date: 20140129
  Transmission Date: 20141002
  Serious: No
  Sender: FDA-Public Use
  Company Number: US-BAYER-2014-014827

PATIENT
  Sex: Male

DRUGS (2)
  1. ADEMPAS [Suspect]
     Dosage: 0.5 MG, UNK
     Route: 048
  2. SILDENAFIL [Concomitant]

REACTIONS (3)
  - Headache [None]
  - Fatigue [None]
  - Erectile dysfunction [None]
